FAERS Safety Report 15814697 (Version 9)
Quarter: 2019Q4

REPORT INFORMATION
  Report Type: Report from Study
  Country: US (occurrence: US)
  Receive Date: 20190111
  Receipt Date: 20191105
  Transmission Date: 20200122
  Serious: Yes (Death, Hospitalization)
  Sender: FDA-Public Use
  Company Number: US-ACTELION-A-NJ2015-124966

PATIENT
  Age: 68 Year
  Sex: Female
  Weight: 47.17 kg

DRUGS (8)
  1. VELETRI [Suspect]
     Active Substance: EPOPROSTENOL
     Dosage: 27.2 NG/KG, PER MIN
     Route: 042
  2. VELETRI [Suspect]
     Active Substance: EPOPROSTENOL
     Dosage: 23.5 NG/KG, PER MIN
     Route: 042
     Dates: start: 20110623
  3. TADALAFIL. [Suspect]
     Active Substance: TADALAFIL
     Indication: PRODUCT USED FOR UNKNOWN INDICATION
     Dosage: UNK
     Route: 065
     Dates: start: 201809, end: 201810
  4. VELETRI [Suspect]
     Active Substance: EPOPROSTENOL
     Dosage: 26.75 NG/KG, PER MIN
     Route: 042
  5. ELIQUIS [Concomitant]
     Active Substance: APIXABAN
  6. VELETRI [Suspect]
     Active Substance: EPOPROSTENOL
     Dosage: 20.7 NG/KG, PER MIN
     Route: 042
  7. OXYGEN. [Concomitant]
     Active Substance: OXYGEN
  8. VELETRI [Suspect]
     Active Substance: EPOPROSTENOL
     Indication: PULMONARY HYPERTENSION
     Dosage: 26.75 NG/KG, PER MIN
     Route: 042

REACTIONS (23)
  - Pulmonary oedema [Unknown]
  - Dyspnoea exertional [Not Recovered/Not Resolved]
  - Fluid overload [Recovering/Resolving]
  - Diarrhoea [Unknown]
  - Oxygen saturation abnormal [Unknown]
  - Pneumonia [Recovering/Resolving]
  - Sinus disorder [Unknown]
  - Seasonal allergy [Unknown]
  - Palpitations [Not Recovered/Not Resolved]
  - Dyspepsia [Unknown]
  - Nasal congestion [Unknown]
  - Fatigue [Unknown]
  - Herpes zoster [Unknown]
  - Hospitalisation [Unknown]
  - Dysphonia [Unknown]
  - Cough [Unknown]
  - Pain in jaw [Unknown]
  - Chest pain [Unknown]
  - Asthenia [Unknown]
  - Neuralgia [Unknown]
  - Death [Fatal]
  - Dyspnoea [Unknown]
  - Sinusitis [Unknown]

NARRATIVE: CASE EVENT DATE: 201805
